FAERS Safety Report 10211145 (Version 1)
Quarter: 2014Q2

REPORT INFORMATION
  Report Type: Spontaneous
  Country: US (occurrence: None)
  Receive Date: 20140530
  Receipt Date: 20140530
  Transmission Date: 20141212
  Serious: No
  Sender: FDA-Public Use
  Company Number: None

PATIENT
  Age: 27 Year
  Sex: Female
  Weight: 127.3 kg

DRUGS (1)
  1. PARAGUARD [Suspect]

REACTIONS (10)
  - Pelvic pain [None]
  - Abdominal pain [None]
  - Muscle spasms [None]
  - Menorrhagia [None]
  - Metrorrhagia [None]
  - Nausea [None]
  - Vomiting [None]
  - Device breakage [None]
  - Embedded device [None]
  - Complication of device removal [None]
